FAERS Safety Report 7946609-X (Version None)
Quarter: 2011Q4

REPORT INFORMATION
  Report Type: 
  Country: None (occurrence: None)
  Receive Date: 20111123
  Receipt Date: 20111111
  Transmission Date: 20120403
  Serious: Yes (Hospitalization, Congenital Anomaly)
  Sender: FDA-Public Use
  Company Number: 1000025660

PATIENT
  Sex: Male

DRUGS (1)
  1. CITALOPRAM HYDROBROMIDE [Suspect]
     Dosage: TRANSPLACENTAL
     Route: 064

REACTIONS (7)
  - SENSORY DISTURBANCE [None]
  - PSYCHOMOTOR HYPERACTIVITY [None]
  - PARAESTHESIA [None]
  - HYPERMOBILITY SYNDROME [None]
  - VISUAL IMPAIRMENT [None]
  - MATERNAL DRUGS AFFECTING FOETUS [None]
  - HEARING IMPAIRED [None]
